FAERS Safety Report 7908419-9 (Version None)
Quarter: 2011Q4

REPORT INFORMATION
  Report Type: 
  Country: None (occurrence: None)
  Receive Date: 20111111
  Receipt Date: 20111104
  Transmission Date: 20120403
  Serious: Yes (Other)
  Sender: FDA-Public Use
  Company Number: US-CELGENEUS-163-21880-11110887

PATIENT
  Sex: Female

DRUGS (16)
  1. BORTEZOMIB [Suspect]
     Indication: MULTIPLE MYELOMA
     Route: 065
  2. ACYCLOVIR [Concomitant]
     Dosage: 800 MILLIGRAM
     Route: 065
  3. NEURONTIN [Concomitant]
     Dosage: 300 MILLIGRAM
     Route: 065
  4. BACTRIM DS [Concomitant]
     Route: 048
  5. REVLIMID [Suspect]
     Dosage: 20-25MG
     Route: 048
     Dates: start: 20060901, end: 20070101
  6. ASPIRIN [Concomitant]
     Dosage: 81 MILLIGRAM
     Route: 065
  7. DEXAMETHASONE [Suspect]
     Indication: MULTIPLE MYELOMA
     Dosage: 12 MILLIGRAM
     Route: 065
  8. DETROL [Concomitant]
     Dosage: 5 MILLIGRAM
     Route: 065
  9. LISINOPRIL AND HYDROCHLOROTHIAZIDE [Concomitant]
     Dosage: 20/25MG
     Route: 065
  10. OXYCODONE HCL [Concomitant]
     Indication: PAIN
     Dosage: 5 MILLIGRAM
     Route: 065
  11. REVLIMID [Suspect]
     Dosage: 25 MILLIGRAM
     Route: 048
     Dates: start: 20090301
  12. CRESTOR [Concomitant]
     Dosage: 5 MILLIGRAM
     Route: 065
  13. GLUCOPHAGE [Concomitant]
     Dosage: 100 MILLIGRAM
     Route: 065
  14. BORTEZOMIB [Suspect]
     Dosage: 1.3 MILLIGRAM/SQ. METER
     Route: 058
  15. LANTUS [Concomitant]
     Dosage: 18 UNITS, INCREASED 3 UNITS EVERY FEW DAYS
     Route: 065
  16. REVLIMID [Suspect]
     Indication: MULTIPLE MYELOMA
     Dosage: 10 MILLIGRAM
     Route: 048
     Dates: start: 20060901

REACTIONS (1)
  - OSTEONECROSIS OF JAW [None]
